FAERS Safety Report 10887116 (Version 1)
Quarter: 2015Q1

REPORT INFORMATION
  Report Type: Spontaneous
  Country: DE (occurrence: DE)
  Receive Date: 20150304
  Receipt Date: 20150304
  Transmission Date: 20150721
  Serious: Yes (Other)
  Sender: FDA-Public Use
  Company Number: DE-PFIZER INC-2015076340

PATIENT
  Age: 51 Year
  Sex: Male

DRUGS (1)
  1. SILDENAFIL PFIZER [Suspect]
     Active Substance: SILDENAFIL
     Dosage: UNK

REACTIONS (1)
  - Drug dependence [Unknown]
